FAERS Safety Report 6756148-X (Version None)
Quarter: 2010Q2

REPORT INFORMATION
  Report Type: 
  Country: None (occurrence: None)
  Receive Date: 20100604
  Receipt Date: 20100525
  Transmission Date: 20101027
  Serious: Yes (Other)
  Sender: FDA-Public Use
  Company Number: BR-PFIZER INC-2010065427

PATIENT
  Age: 74 Year
  Sex: Female
  Weight: 58 kg

DRUGS (1)
  1. XALATAN [Suspect]
     Indication: GLAUCOMA
     Dosage: 3 UG, UNKNOWN FREQUENCY
     Route: 047

REACTIONS (3)
  - HYPOTENSION [None]
  - NEOPLASM MALIGNANT [None]
  - OSTEONECROSIS [None]
